FAERS Safety Report 10137747 (Version 1)
Quarter: 2014Q2

REPORT INFORMATION
  Report Type: Spontaneous
  Country: US (occurrence: US)
  Receive Date: 20140429
  Receipt Date: 20140429
  Transmission Date: 20141212
  Serious: Yes (Other)
  Sender: FDA-Public Use
  Company Number: US-BAYER-2014-059983

PATIENT
  Age: 35 Year
  Sex: Female
  Weight: 69.84 kg

DRUGS (1)
  1. YAZ [Suspect]

REACTIONS (1)
  - Deep vein thrombosis [Recovered/Resolved]
